FAERS Safety Report 5163212-8 (Version None)
Quarter: 2006Q4

REPORT INFORMATION
  Report Type: 
  Country: None (occurrence: None)
  Receive Date: 20061204
  Receipt Date: 20061115
  Transmission Date: 20070319
  Serious: Yes (Other)
  Sender: FDA-Public Use
  Company Number: PHHO2006GB19395

PATIENT
  Age: 43 Year
  Sex: Female

DRUGS (2)
  1. OXYTOCIN [Suspect]
     Dosage: 10 IU IN 500 ML SALINE
     Route: 042
     Dates: start: 20060917
  2. DINOPROSTONE [Suspect]
     Indication: LABOUR INDUCTION
     Dosage: 6 MG/DAY
     Route: 067
     Dates: start: 20060915, end: 20060916

REACTIONS (2)
  - DRUG EXPOSURE DURING PREGNANCY [None]
  - VENTOUSE EXTRACTION [None]
